FAERS Safety Report 4293477-6 (Version None)
Quarter: 2004Q1

REPORT INFORMATION
  Report Type: 
  Country: None (occurrence: None)
  Receive Date: 20040126
  Receipt Date: 20031010
  Transmission Date: 20041129
  Serious: No
  Sender: FDA-Public Use
  Company Number: USA031049624

PATIENT
  Age: 64 Year
  Sex: Female
  Weight: 63 kg

DRUGS (6)
  1. FORTEO [Suspect]
     Indication: OSTEOPOROSIS
     Dates: start: 20031010
  2. CALTRATE (CALCIUM CARBONATE) [Concomitant]
  3. SYNTHROID [Concomitant]
  4. NEXIUM [Concomitant]
  5. ZOCOR [Concomitant]
  6. AMITRIPTYLINE HCL [Concomitant]

REACTIONS (1)
  - INJECTION SITE ERYTHEMA [None]
